FAERS Safety Report 4396785-3 (Version None)
Quarter: 2004Q3

REPORT INFORMATION
  Report Type: 
  Country: None (occurrence: None)
  Receive Date: 20040713
  Receipt Date: 20040713
  Transmission Date: 20050211
  Serious: Yes (Death, Life-Threatening, Hospitalization)
  Sender: FDA-Public Use
  Company Number: None

PATIENT
  Age: 71 Year
  Sex: Female
  Weight: 113.3993 kg

DRUGS (4)
  1. REMICADE [Suspect]
     Indication: CONDITION AGGRAVATED
     Dosage: INITIAL  AND INTRAVENOUS
     Route: 042
     Dates: start: 20040420, end: 20040505
  2. REMICADE [Suspect]
     Indication: RHEUMATOID ARTHRITIS
     Dosage: INITIAL  AND INTRAVENOUS
     Route: 042
     Dates: start: 20040420, end: 20040505
  3. COUMADIN [Concomitant]
  4. ASTHMA INHALERS [Concomitant]

REACTIONS (10)
  - COAGULOPATHY [None]
  - CONDITION AGGRAVATED [None]
  - CONFUSIONAL STATE [None]
  - CYSTITIS [None]
  - FALL [None]
  - HEAD INJURY [None]
  - JAUNDICE [None]
  - NAUSEA [None]
  - RESPIRATORY DISTRESS [None]
  - RHEUMATOID ARTHRITIS [None]
